FAERS Safety Report 25522187 (Version 1)
Quarter: 2025Q3

REPORT INFORMATION
  Report Type: Spontaneous
  Country: US (occurrence: US)
  Receive Date: 20250707
  Receipt Date: 20250707
  Transmission Date: 20251020
  Serious: No
  Sender: ROCHE
  Company Number: US-ROCHE-10000327756

PATIENT
  Sex: Female

DRUGS (2)
  1. XOLAIR [Suspect]
     Active Substance: OMALIZUMAB
     Indication: Idiopathic urticaria
     Dosage: (STRENGTH: 300/2ML)
     Route: 058
     Dates: start: 202307
  2. XOLAIR [Suspect]
     Active Substance: OMALIZUMAB

REACTIONS (2)
  - Off label use [Unknown]
  - Urticaria [Unknown]
